FAERS Safety Report 11171068 (Version 1)
Quarter: 2015Q2

REPORT INFORMATION
  Report Type: Spontaneous
  Country: US (occurrence: None)
  Receive Date: 20150605
  Receipt Date: 20150605
  Transmission Date: 20150821
  Serious: Yes (Disabling)
  Sender: FDA-Public Use
  Company Number: None

PATIENT
  Age: 34 Year
  Sex: Female
  Weight: 49.9 kg

DRUGS (1)
  1. CLARAVIS [Suspect]
     Active Substance: ISOTRETINOIN
     Indication: ACNE
     Dosage: 1 PILL
     Route: 048
     Dates: start: 20100210, end: 20100812

REACTIONS (20)
  - Vaginal disorder [None]
  - Constipation [None]
  - Back pain [None]
  - Arthralgia [None]
  - Diarrhoea [None]
  - Abdominal pain [None]
  - Skin wrinkling [None]
  - Lip dry [None]
  - Photosensitivity reaction [None]
  - Skin atrophy [None]
  - Nausea [None]
  - Dry skin [None]
  - Myalgia [None]
  - Libido decreased [None]
  - Abdominal distension [None]
  - Alopecia [None]
  - Pallor [None]
  - Night blindness [None]
  - Eructation [None]
  - Hair texture abnormal [None]

NARRATIVE: CASE EVENT DATE: 20100210
